FAERS Safety Report 5225646-2 (Version None)
Quarter: 2007Q1

REPORT INFORMATION
  Report Type: 
  Country: None (occurrence: None)
  Receive Date: 20061201
  Receipt Date: 20061024
  Transmission Date: 20070707
  Serious: Yes (Hospitalization)
  Sender: FDA-Public Use
  Company Number: US200610004464

PATIENT
  Age: 75 Year
  Sex: Male

DRUGS (6)
  1. ZYPREXA [Suspect]
     Dosage: 5 MG
  2. CYMBALTA [Suspect]
     Indication: ANXIETY
     Dosage: 60 MG, DAILY (1/D), UNK
     Dates: start: 20060101, end: 20061024
  3. PROZAC [Concomitant]
  4. ABILIFY [Concomitant]
  5. ZOLOFT [Concomitant]
  6. LUVOX [Concomitant]

REACTIONS (8)
  - DEPRESSED MOOD [None]
  - EYE SWELLING [None]
  - FEELING GUILTY [None]
  - LYMPHOEDEMA [None]
  - OBSESSIVE THOUGHTS [None]
  - PERONEAL NERVE PALSY [None]
  - SUICIDAL IDEATION [None]
  - URINARY RETENTION [None]
